FAERS Safety Report 10385345 (Version 2)
Quarter: 2014Q3

REPORT INFORMATION
  Report Type: Spontaneous
  Country: US (occurrence: US)
  Receive Date: 20140814
  Receipt Date: 20140814
  Transmission Date: 20150326
  Serious: Yes (Hospitalization, Other)
  Sender: FDA-Public Use
  Company Number: US-009507513-2011SP000360

PATIENT
  Sex: Female
  Weight: 103.42 kg

DRUGS (3)
  1. NUVARING [Suspect]
     Active Substance: ETHINYL ESTRADIOL\ETONOGESTREL
     Indication: MENSTRUAL CYCLE MANAGEMENT
     Dosage: UNK
     Route: 067
     Dates: start: 20060817
  2. NUVARING [Suspect]
     Active Substance: ETHINYL ESTRADIOL\ETONOGESTREL
     Indication: CONTRACEPTION
     Dosage: UNK
     Dates: start: 200911, end: 20100120
  3. CLARITIN [Concomitant]
     Active Substance: LORATADINE
     Dosage: OVER THE COUNTER

REACTIONS (4)
  - Hypercoagulation [Unknown]
  - Anxiety [Unknown]
  - Headache [Unknown]
  - Pulmonary embolism [Unknown]

NARRATIVE: CASE EVENT DATE: 20100115
